FAERS Safety Report 11254839 (Version 1)
Quarter: 2015Q2

REPORT INFORMATION
  Report Type: Spontaneous
  Country: US (occurrence: None)
  Receive Date: 20150617
  Receipt Date: 20150617
  Transmission Date: 20150821
  Serious: No
  Sender: FDA-Public Use
  Company Number: 2014TASUS000621

PATIENT
  Age: 62 Year
  Sex: Male

DRUGS (13)
  1. HETLIOZ [Suspect]
     Active Substance: TASIMELTEON
     Indication: CIRCADIAN RHYTHM SLEEP DISORDER
     Route: 048
     Dates: start: 20141125
  2. FINASTERIDE (FINASTERIDE) [Concomitant]
     Active Substance: FINASTERIDE
  3. ISOSORBIDE MONONITRATE (ISOSORBIDE MONONITRATE) [Concomitant]
     Active Substance: ISOSORBIDE MONONITRATE
  4. SERTRALINE HCL (SERTRALINE HYDROCHLORIDE) [Concomitant]
  5. RENVELA [Concomitant]
     Active Substance: SEVELAMER CARBONATE
  6. ASPIRIN (ACETYLSALICYLIC ACID) [Concomitant]
     Active Substance: ASPIRIN
  7. NEXIUM [Concomitant]
     Active Substance: ESOMEPRAZOLE MAGNESIUM
  8. HYDRALAZINE HCL (HYDRALAZINE HYDROCHLORIDE) [Concomitant]
  9. TAMSULOSIN HCL (TAMSULOSIN HYDROCHLORIDE) [Concomitant]
  10. VITAMIN D (COLECALCIFEROL) [Concomitant]
  11. CARVEDILOL (CARVEDILOL) [Concomitant]
     Active Substance: CARVEDILOL
  12. AMLODIPINE BESYLATE (AMLODIPINE BESYLATE) [Concomitant]
  13. ALLOPURINOL (ALLOPURINOL) [Concomitant]
     Active Substance: ALLOPURINOL

REACTIONS (2)
  - Insomnia [None]
  - Drug ineffective [None]

NARRATIVE: CASE EVENT DATE: 20141125
